FAERS Safety Report 4631545-7 (Version None)
Quarter: 2005Q2

REPORT INFORMATION
  Report Type: 
  Country: None (occurrence: None)
  Receive Date: 20050407
  Receipt Date: 20050323
  Transmission Date: 20051028
  Serious: Yes (Other)
  Sender: FDA-Public Use
  Company Number: 2005043605

PATIENT
  Sex: Male
  Weight: 70 kg

DRUGS (16)
  1. INSPRA [Suspect]
     Indication: ILL-DEFINED DISORDER
     Dosage: 25 MG, ORAL
     Route: 048
     Dates: start: 20050217, end: 20050309
  2. ATORVASTATIN CALCIUM [Suspect]
     Indication: ILL-DEFINED DISORDER
     Dosage: 20 MG, ORAL
     Route: 048
     Dates: start: 20050101, end: 20050314
  3. RAMIPRIL [Suspect]
     Indication: ILL-DEFINED DISORDER
     Dosage: 5 MG, ORAL
     Route: 048
     Dates: start: 20050209, end: 20050308
  4. BISOPROLOL (BISOPROLOL) [Concomitant]
  5. CLOPIDOGREL BISULFATE [Concomitant]
  6. ALLOPURINOL [Concomitant]
  7. MELPERONE (MELPERONE) [Concomitant]
  8. TORSEMIDE [Concomitant]
  9. METRONIDAZOLE [Concomitant]
  10. MIRTAZAPINE (MIRTIAZAPINE) [Concomitant]
  11. ACETYLCYSTEINE [Concomitant]
  12. POTASSIUM ACETATE [Concomitant]
  13. TEMAZEPAM [Concomitant]
  14. CEFTRIAXONE SODIUM (CEFRIAXONE SODIUM) [Concomitant]
  15. GLIMEPIRIDE [Concomitant]
  16. ASPIRIN [Concomitant]

REACTIONS (7)
  - ALANINE AMINOTRANSFERASE INCREASED [None]
  - ASPARTATE AMINOTRANSFERASE INCREASED [None]
  - BLOOD ALKALINE PHOSPHATASE INCREASED [None]
  - CHOLESTASIS [None]
  - DIARRHOEA [None]
  - GAMMA-GLUTAMYLTRANSFERASE INCREASED [None]
  - GENERAL PHYSICAL HEALTH DETERIORATION [None]
